FAERS Safety Report 9023684 (Version 1)
Quarter: 2013Q1

REPORT INFORMATION
  Report Type: Spontaneous
  Country: US (occurrence: US)
  Receive Date: 20130121
  Receipt Date: 20130121
  Transmission Date: 20140127
  Serious: Yes (Hospitalization)
  Sender: FDA-Public Use
  Company Number: US-ASTELLAS-2013US000523

PATIENT
  Sex: Female

DRUGS (4)
  1. PROGRAF [Suspect]
     Indication: RENAL TRANSPLANT
     Dosage: 1 MG, UID/QD
     Route: 048
     Dates: start: 20100222
  2. PROGRAF [Suspect]
     Dosage: 0.5 MG, UID/QD
     Route: 048
     Dates: start: 20110302
  3. PROGRAF [Suspect]
     Dosage: 2 MG, UID/QD
     Route: 048
  4. PROGRAF [Suspect]
     Dosage: UNK
     Route: 048

REACTIONS (1)
  - Hospitalisation [Unknown]
